FAERS Safety Report 18593676 (Version 2)
Quarter: 2021Q1

REPORT INFORMATION
  Report Type: Spontaneous
  Country: US (occurrence: US)
  Receive Date: 20201209
  Receipt Date: 20210308
  Transmission Date: 20210419
  Serious: No
  Sender: FDA-Public Use
  Company Number: US-BIOVITRUM-2020US7271

PATIENT
  Age: 2 Month
  Sex: Female
  Weight: 5 kg

DRUGS (8)
  1. CHILDRENS ACETAMINOPHEN [Concomitant]
     Active Substance: ACETAMINOPHEN
  2. MOTRIN IB [Concomitant]
     Active Substance: IBUPROFEN
  3. SYNAGIS [Suspect]
     Active Substance: PALIVIZUMAB
     Indication: PREMATURE BABY
     Route: 030
  4. SYNAGIS [Suspect]
     Active Substance: PALIVIZUMAB
     Indication: PULMONARY HAEMORRHAGE
  5. SYNAGIS [Suspect]
     Active Substance: PALIVIZUMAB
     Indication: FALLOT^S TETRALOGY
  6. POLY?VI?SOL [Concomitant]
     Active Substance: VITAMINS
     Dosage: 250?50/ML DROPS
  7. SYNAGIS [Suspect]
     Active Substance: PALIVIZUMAB
     Indication: LOW BIRTH WEIGHT BABY
  8. PROBIOTIC 5B CELL CAP SPRINK [Concomitant]

REACTIONS (2)
  - Urticaria [Recovered/Resolved]
  - Injection site rash [Recovered/Resolved]

NARRATIVE: CASE EVENT DATE: 202011
